FAERS Safety Report 7023530-5 (Version None)
Quarter: 2010Q3

REPORT INFORMATION
  Report Type: 
  Country: None (occurrence: None)
  Receive Date: 20100930
  Receipt Date: 20100930
  Transmission Date: 20110219
  Serious: Yes (Hospitalization)
  Sender: FDA-Public Use
  Company Number: None

PATIENT
  Sex: Male
  Weight: 131.8 kg

DRUGS (1)
  1. BYETTA [Suspect]
     Indication: TYPE 2 DIABETES MELLITUS
     Dosage: 10 MCG BID SUB Q
     Route: 058
     Dates: start: 20100701, end: 20100901

REACTIONS (2)
  - BLOOD TRIGLYCERIDES DECREASED [None]
  - PANCREATITIS [None]
